FAERS Safety Report 16320499 (Version 3)
Quarter: 2019Q2

REPORT INFORMATION
  Report Type: Spontaneous
  Country: US (occurrence: US)
  Receive Date: 20190516
  Receipt Date: 20190607
  Transmission Date: 20190711
  Serious: No
  Sender: FDA-Public Use
  Company Number: US-PFIZER INC-2019202379

PATIENT
  Age: 58 Year
  Sex: Female
  Weight: 66 kg

DRUGS (4)
  1. ATORVASTATIN CALCIUM. [Suspect]
     Active Substance: ATORVASTATIN CALCIUM
     Dosage: 20 MG, 1X/DAY
     Route: 048
     Dates: start: 2018, end: 2018
  2. ATORVASTATIN CALCIUM. [Suspect]
     Active Substance: ATORVASTATIN CALCIUM
     Dosage: 20 MG, 1X/DAY [ONE HALF TABLET BY MOUTH ONCE DAILY]
     Route: 048
     Dates: start: 2018
  3. ATORVASTATIN CALCIUM. [Suspect]
     Active Substance: ATORVASTATIN CALCIUM
     Indication: BLOOD CHOLESTEROL ABNORMAL
     Dosage: 40 MG, 1X/DAY
     Dates: start: 201812, end: 2018
  4. ATORVASTATIN CALCIUM. [Suspect]
     Active Substance: ATORVASTATIN CALCIUM
     Dosage: UNK
     Dates: start: 201902, end: 201904

REACTIONS (10)
  - Cardiac disorder [Unknown]
  - Pain [Unknown]
  - Wrong technique in product usage process [Unknown]
  - Arthralgia [Not Recovered/Not Resolved]
  - Arthritis [Unknown]
  - Wrist fracture [Unknown]
  - Ankle fracture [Unknown]
  - Muscle spasms [Unknown]
  - Blood cholesterol decreased [Unknown]
  - Malaise [Unknown]

NARRATIVE: CASE EVENT DATE: 201812
